FAERS Safety Report 12645053 (Version 1)
Quarter: 2016Q3

REPORT INFORMATION
  Report Type: Spontaneous
  Country: US (occurrence: US)
  Receive Date: 20160811
  Receipt Date: 20160811
  Transmission Date: 20161109
  Serious: No
  Sender: FDA-Public Use
  Company Number: US-PFIZER INC-2016376866

PATIENT
  Age: 58 Year
  Sex: Male
  Weight: 75.74 kg

DRUGS (14)
  1. AMLODIPINE [Concomitant]
     Active Substance: AMLODIPINE BESYLATE
     Dosage: 10 MG, 1X/DAY
     Route: 048
     Dates: start: 20160426
  2. ASPIRIN 81 [Concomitant]
     Active Substance: ASPIRIN
     Dosage: 81 MG, 1X/DAY
     Route: 048
  3. CILOSTAZOL. [Concomitant]
     Active Substance: CILOSTAZOL
     Dosage: 100 MG, 2X/DAY 0.5 HOUR BEFORE OR 2 HOURS AFTER
     Route: 048
     Dates: start: 20160603
  4. GLIPIZIDE. [Concomitant]
     Active Substance: GLIPIZIDE
     Dosage: 5 MG, DAILY
     Route: 048
     Dates: start: 20160802
  5. METFORMIN [Concomitant]
     Active Substance: METFORMIN HYDROCHLORIDE
     Dosage: 1000 MG, 2X/DAY PER DAY WITH MORNING
     Route: 048
     Dates: start: 20160505
  6. GLIPIZIDE. [Concomitant]
     Active Substance: GLIPIZIDE
     Dosage: 5 MG, 1X/DAY BEFORE A MEAL
     Route: 048
     Dates: start: 20160505
  7. OMEPRAZOLE. [Concomitant]
     Active Substance: OMEPRAZOLE
     Dosage: 20 MG, 2X/DAY
     Route: 048
     Dates: start: 20160713
  8. TRAMADOL. [Concomitant]
     Active Substance: TRAMADOL
     Dosage: 2 TABLET (100MG) BY ORAL ROUTE THREE TIMES A DAY AS NEEDED
     Route: 048
     Dates: start: 20160607
  9. TRAMADOL. [Concomitant]
     Active Substance: TRAMADOL
     Dosage: 2 TABLET (100MG) BY ORAL ROUTE THREE TIMES A DAY AS NEEDED
     Route: 048
     Dates: start: 20160802
  10. REGLAN [Concomitant]
     Active Substance: METOCLOPRAMIDE HYDROCHLORIDE
     Dosage: 10 MG, 1X/DAY
     Route: 048
  11. ATORVASTATIN [Concomitant]
     Active Substance: ATORVASTATIN
     Dosage: 20 MG, 1X/DAY
     Route: 048
     Dates: start: 20160426
  12. CYMBALTA [Concomitant]
     Active Substance: DULOXETINE HYDROCHLORIDE
     Dosage: 30 MG, 1X/DAY
     Route: 048
     Dates: start: 20160126
  13. LISINOPRIL. [Concomitant]
     Active Substance: LISINOPRIL
     Dosage: 20 MG, 1X/DAY
     Route: 048
     Dates: start: 20160426
  14. LYRICA [Suspect]
     Active Substance: PREGABALIN
     Dosage: 100 MG, 2X/DAY
     Route: 048
     Dates: start: 20160426

REACTIONS (7)
  - Hypoaesthesia [Unknown]
  - Pain in extremity [Unknown]
  - Intermittent claudication [Unknown]
  - Drug hypersensitivity [Unknown]
  - Paraesthesia [Unknown]
  - Ankle brachial index abnormal [Unknown]
  - Diarrhoea [Unknown]
